FAERS Safety Report 11495435 (Version 1)
Quarter: 2015Q3

REPORT INFORMATION
  Report Type: Spontaneous
  Country: PY (occurrence: PY)
  Receive Date: 20150911
  Receipt Date: 20150911
  Transmission Date: 20151125
  Serious: Yes (Death, Hospitalization, Other)
  Sender: FDA-Public Use
  Company Number: PY-SA-2015SA114407

PATIENT
  Age: 9 Month
  Sex: Male
  Weight: 6.6 kg

DRUGS (1)
  1. MYOZYME [Suspect]
     Active Substance: ALGLUCOSIDASE ALFA
     Indication: GLYCOGEN STORAGE DISEASE TYPE II
     Dosage: DOSE: 150 MG
     Route: 041
     Dates: end: 20150826

REACTIONS (8)
  - Cardiogenic shock [Fatal]
  - Pyrexia [Not Recovered/Not Resolved]
  - Cardio-respiratory distress [Unknown]
  - Cardiac disorder [Unknown]
  - Arrhythmia [Unknown]
  - Atelectasis [Unknown]
  - Pneumonia [Not Recovered/Not Resolved]
  - Respiratory acidosis [Not Recovered/Not Resolved]

NARRATIVE: CASE EVENT DATE: 2015
